FAERS Safety Report 6676354-2 (Version None)
Quarter: 2010Q2

REPORT INFORMATION
  Report Type: 
  Country: None (occurrence: None)
  Receive Date: 20100408
  Receipt Date: 20100330
  Transmission Date: 20101027
  Serious: Yes (Death)
  Sender: FDA-Public Use
  Company Number: 1000012243

PATIENT
  Age: 42 Year
  Sex: Male
  Weight: 80.7403 kg

DRUGS (7)
  1. CITALOPRAM HYDROBROMIDE [Suspect]
  2. OXYCODONE [Suspect]
  3. OXYMORPHONE [Suspect]
  4. HYDROCODONE BITARTRATE [Suspect]
  5. DIHYDROCODEINE BITARTRATE INJ [Suspect]
  6. THC [Suspect]
  7. LORAZEPAM [Suspect]

REACTIONS (2)
  - COMPLETED SUICIDE [None]
  - DRUG TOXICITY [None]
